FAERS Safety Report 14246104 (Version 1)
Quarter: 2017Q4

REPORT INFORMATION
  Report Type: Spontaneous
  Country: US (occurrence: US)
  Receive Date: 20171204
  Receipt Date: 20171204
  Transmission Date: 20180321
  Serious: Yes (Hospitalization, Other)
  Sender: FDA-Public Use
  Company Number: US-MYLANLABS-2017M1075517

PATIENT
  Age: 52 Year
  Sex: Male

DRUGS (2)
  1. MERCAPTOPURINE. [Suspect]
     Active Substance: MERCAPTOPURINE
     Indication: CROHN^S DISEASE
     Dosage: 75 MG DAILY
     Route: 048
  2. HUMIRA [Suspect]
     Active Substance: ADALIMUMAB
     Indication: CROHN^S DISEASE
     Dosage: 40 MG WEEKLY
     Route: 065

REACTIONS (2)
  - Salmonella bacteraemia [Recovering/Resolving]
  - Salmonellosis [Recovering/Resolving]

NARRATIVE: CASE EVENT DATE: 201104
